FAERS Safety Report 8135949-X (Version None)
Quarter: 2012Q1

REPORT INFORMATION
  Report Type: 
  Country: None (occurrence: None)
  Receive Date: 20120214
  Receipt Date: 20120206
  Transmission Date: 20120608
  Serious: Yes (Hospitalization, Other)
  Sender: FDA-Public Use
  Company Number: FI-SANOFI-AVENTIS-2012SA008202

PATIENT
  Age: 78 Year
  Sex: Male

DRUGS (8)
  1. PRIMASPAN [Concomitant]
  2. ISMOX [Concomitant]
  3. SIMVASTATIN [Concomitant]
  4. JEVTANA KIT [Suspect]
     Indication: PROSTATE CANCER
     Route: 042
     Dates: start: 20111116, end: 20111116
  5. NEULASTA [Concomitant]
  6. ZOLT [Concomitant]
  7. JEVTANA KIT [Suspect]
     Route: 042
     Dates: start: 20120103, end: 20120103
  8. BISOPROLOL FUMARATE [Concomitant]

REACTIONS (3)
  - LARGE INTESTINE PERFORATION [None]
  - ABDOMINAL PAIN [None]
  - PYREXIA [None]
